FAERS Safety Report 7549785-6 (Version None)
Quarter: 2011Q2

REPORT INFORMATION
  Report Type: 
  Country: None (occurrence: None)
  Receive Date: 20110615
  Receipt Date: 20061220
  Transmission Date: 20111010
  Serious: Yes (Hospitalization, Other)
  Sender: FDA-Public Use
  Company Number: PHFR2006GB03101

PATIENT
  Sex: Female

DRUGS (1)
  1. CLOZAPINE [Suspect]
     Indication: SCHIZOPHRENIA
     Route: 048
     Dates: start: 20060730

REACTIONS (7)
  - OTITIS EXTERNA [None]
  - DIABETES MELLITUS [None]
  - PARONYCHIA [None]
  - PSEUDOMONAS INFECTION [None]
  - C-REACTIVE PROTEIN INCREASED [None]
  - BLOOD GLUCOSE INCREASED [None]
  - NASOPHARYNGITIS [None]
